FAERS Safety Report 5150787-8 (Version None)
Quarter: 2006Q4

REPORT INFORMATION
  Report Type: 
  Country: None (occurrence: None)
  Receive Date: 20061108
  Receipt Date: 20061101
  Transmission Date: 20070319
  Serious: Yes (Hospitalization)
  Sender: FDA-Public Use
  Company Number: 2006JP004371

PATIENT
  Age: 81 Year
  Sex: Female

DRUGS (4)
  1. VESICARE [Suspect]
     Indication: HYPERTONIC BLADDER
     Dosage: 5 MG,UID/QD, ORAL
     Route: 048
     Dates: start: 20060905
  2. BISOPROLOL FUMARATE [Concomitant]
  3. TICLOPIDINE HCL [Concomitant]
  4. PRAVASTATIN [Concomitant]

REACTIONS (1)
  - CYSTITIS [None]
